FAERS Safety Report 24834928 (Version 2)
Quarter: 2025Q1

REPORT INFORMATION
  Report Type: Spontaneous
  Country: US (occurrence: US)
  Receive Date: 20250113
  Receipt Date: 20250116
  Transmission Date: 20250409
  Serious: No
  Sender: SUNOVION
  Company Number: US-SMPA-2024SPA006754AA

PATIENT

DRUGS (1)
  1. ORGOVYX [Suspect]
     Active Substance: RELUGOLIX
     Indication: Prostate cancer

REACTIONS (1)
  - Erythema [Unknown]
